FAERS Safety Report 11231134 (Version 15)
Quarter: 2016Q3

REPORT INFORMATION
  Report Type: Report from Study
  Country: JP (occurrence: JP)
  Receive Date: 20150701
  Receipt Date: 20160725
  Transmission Date: 20161109
  Serious: Yes (Hospitalization)
  Sender: FDA-Public Use
  Company Number: PHJP2015JP009983

PATIENT
  Age: 2 Year
  Sex: Male
  Weight: 7 kg

DRUGS (36)
  1. ACZ885 [Suspect]
     Active Substance: CANAKINUMAB
     Indication: HYPER IGD SYNDROME
     Dosage: 2 MG/KG, UNK
     Route: 058
     Dates: start: 20150513, end: 20150513
  2. SOLDEM [Concomitant]
     Active Substance: DEXTROSE\POTASSIUM CHLORIDE\SODIUM CHLORIDE\SODIUM LACTATE
     Indication: HEPATIC FAILURE
     Dosage: 300 ML, UNK
     Route: 042
     Dates: start: 20150623
  3. NO TREATMENT RECEIVED [Suspect]
     Active Substance: UNSPECIFIED INGREDIENT
     Indication: HYPER IGD SYNDROME
     Dosage: UNK ML, UNK
     Route: 058
  4. MEDROL [Concomitant]
     Active Substance: METHYLPREDNISOLONE
     Dosage: 2.5 MG, BID
     Route: 045
  5. AZUNOL [Concomitant]
     Active Substance: SODIUM GUALENATE
     Indication: ECZEMA
     Dosage: UNK, BID
     Route: 062
     Dates: start: 20150122
  6. CEFCAPENE [Concomitant]
     Active Substance: CEFCAPENE
     Indication: PRODUCT USED FOR UNKNOWN INDICATION
     Dosage: UNK
     Route: 065
     Dates: start: 20150420, end: 20150428
  7. PREDNISOLONE. [Concomitant]
     Active Substance: PREDNISOLONE
     Dosage: 10 MG, UNK
     Route: 065
     Dates: start: 20150813, end: 20150831
  8. PREDNISOLONE. [Concomitant]
     Active Substance: PREDNISOLONE
     Dosage: 8 MG, UNK
     Route: 065
     Dates: start: 20150901, end: 20150915
  9. FRAGMIN [Concomitant]
     Active Substance: DALTEPARIN SODIUM
     Indication: IMMUNE THROMBOCYTOPENIC PURPURA
     Dosage: UNK
     Route: 065
     Dates: start: 20150228, end: 20150303
  10. MEDROL [Concomitant]
     Active Substance: METHYLPREDNISOLONE
     Dosage: UNK
     Route: 045
  11. LOCOID [Concomitant]
     Active Substance: HYDROCORTISONE BUTYRATE
     Indication: ECZEMA
     Dosage: UNK, BID
     Route: 062
     Dates: start: 20140205
  12. PREDNISOLONE. [Concomitant]
     Active Substance: PREDNISOLONE
     Indication: IMMUNE THROMBOCYTOPENIC PURPURA
     Dosage: 5 MG, UNK
     Route: 065
     Dates: start: 20150523
  13. PREDNISOLONE. [Concomitant]
     Active Substance: PREDNISOLONE
     Dosage: 1 G, QOD
     Route: 065
     Dates: start: 20150313, end: 20150712
  14. PREDNISOLONE. [Concomitant]
     Active Substance: PREDNISOLONE
     Dosage: 16 MG, UNK
     Route: 065
     Dates: start: 20150713, end: 20150812
  15. PREDNISOLONE. [Concomitant]
     Active Substance: PREDNISOLONE
     Dosage: 5 MG, UNK
     Route: 065
     Dates: start: 20151009, end: 20151101
  16. PREDNISOLONE. [Concomitant]
     Active Substance: PREDNISOLONE
     Dosage: 6 MG, UNK
     Route: 065
     Dates: start: 20160119
  17. MEDROL [Concomitant]
     Active Substance: METHYLPREDNISOLONE
     Indication: HYPER IGD SYNDROME
     Dosage: 4 MG, QD
     Route: 045
     Dates: start: 20150313, end: 20150315
  18. MEDROL [Concomitant]
     Active Substance: METHYLPREDNISOLONE
     Dosage: 1 MG, BID
     Route: 045
     Dates: start: 20150319, end: 20150321
  19. MEDROL [Concomitant]
     Active Substance: METHYLPREDNISOLONE
     Dosage: 0.75 MG, BID
     Route: 045
     Dates: start: 20150322, end: 20150324
  20. MEDROL [Concomitant]
     Active Substance: METHYLPREDNISOLONE
     Dosage: UNK
     Route: 045
  21. L CARTIN [Concomitant]
     Active Substance: LEVOCARNITINE HYDROCHLORIDE
     Indication: MILK ALLERGY
     Dosage: 33 MG, TID
     Route: 045
     Dates: start: 20140501
  22. PREDNISOLONE. [Concomitant]
     Active Substance: PREDNISOLONE
     Dosage: 4 MG, UNK
     Route: 065
     Dates: start: 20151102, end: 20151202
  23. MUCOSAL [Concomitant]
     Indication: INCREASED BRONCHIAL SECRETION
     Dosage: 0.1 G, TID
     Route: 045
     Dates: start: 20140917, end: 20150611
  24. CEFCAPENE [Concomitant]
     Active Substance: CEFCAPENE
     Dosage: UNK
     Route: 065
     Dates: start: 20150502, end: 20150511
  25. PREDNISOLONE. [Concomitant]
     Active Substance: PREDNISOLONE
     Dosage: 6 MG, UNK
     Route: 065
     Dates: start: 20151003, end: 20151008
  26. MEDROL [Concomitant]
     Active Substance: METHYLPREDNISOLONE
     Dosage: 1.5 MG, BID
     Route: 045
     Dates: start: 20150316, end: 20150318
  27. MEDROL [Concomitant]
     Active Substance: METHYLPREDNISOLONE
     Dosage: 0.5 MG, BID
     Route: 045
     Dates: start: 20150506
  28. EPINASTINE [Concomitant]
     Active Substance: EPINASTINE
     Dosage: UNK
     Route: 065
     Dates: start: 20150502, end: 20150511
  29. PREDNISOLONE. [Concomitant]
     Active Substance: PREDNISOLONE
     Dosage: 7 MG, UNK
     Route: 065
     Dates: start: 20151203, end: 20160118
  30. MIYA-BM [Concomitant]
     Active Substance: CLOSTRIDIUM BUTYRICUM SPORES STRAIN M-55
     Indication: HYPER IGD SYNDROME
     Dosage: 0.16 G, TID
     Route: 045
     Dates: start: 20130822, end: 20150611
  31. MUCODYNE [Concomitant]
     Active Substance: CARBOCYSTEINE
     Indication: INCREASED BRONCHIAL SECRETION
     Dosage: 0.1 G, TID
     Route: 045
     Dates: start: 20140917, end: 20150611
  32. GASTER [Concomitant]
     Active Substance: FAMOTIDINE
     Indication: PROPHYLAXIS
     Dosage: 4 MG, QD
     Route: 045
     Dates: start: 20131202
  33. ABTEI BIOTIN [Concomitant]
     Indication: MILK ALLERGY
     Dosage: 0.008 MG, BID
     Route: 045
     Dates: start: 20140522, end: 20150611
  34. EPINASTINE [Concomitant]
     Active Substance: EPINASTINE
     Indication: ANTIALLERGIC THERAPY
     Dosage: UNK
     Route: 065
     Dates: start: 20150424, end: 20150428
  35. PREDNISOLONE. [Concomitant]
     Active Substance: PREDNISOLONE
     Dosage: 5 MG, UNK
     Route: 065
     Dates: start: 20150310, end: 20150312
  36. PREDNISOLONE. [Concomitant]
     Active Substance: PREDNISOLONE
     Dosage: 7 MG, UNK
     Route: 065
     Dates: start: 20150916, end: 20151002

REACTIONS (3)
  - Hepatic failure [Recovered/Resolved]
  - Hepatic atrophy [Unknown]
  - Pancytopenia [Recovered/Resolved]

NARRATIVE: CASE EVENT DATE: 20150528
